FAERS Safety Report 7239389-7 (Version None)
Quarter: 2011Q1

REPORT INFORMATION
  Report Type: 
  Country: None (occurrence: None)
  Receive Date: 20110121
  Receipt Date: 20110113
  Transmission Date: 20110831
  Serious: Yes (Hospitalization)
  Sender: FDA-Public Use
  Company Number: AU-ABBOTT-10P-008-0691872-00

PATIENT
  Age: 30 Year
  Sex: Male

DRUGS (2)
  1. ISENTRESS [Concomitant]
     Indication: HIV INFECTION
  2. KALETRA [Suspect]
     Indication: HIV INFECTION
     Route: 048
     Dates: start: 20101203

REACTIONS (1)
  - MENINGITIS CRYPTOCOCCAL [None]
